FAERS Safety Report 7486850-6 (Version None)
Quarter: 2011Q2

REPORT INFORMATION
  Report Type: 
  Country: None (occurrence: None)
  Receive Date: 20110517
  Receipt Date: 20110505
  Transmission Date: 20111010
  Serious: Yes (Death, Hospitalization, Other)
  Sender: FDA-Public Use
  Company Number: US-BAXTER-2011BH012586

PATIENT
  Sex: Male

DRUGS (2)
  1. DIANEAL [Suspect]
     Indication: PERITONEAL DIALYSIS
     Route: 033
     Dates: end: 20110416
  2. DIANEAL [Suspect]
     Indication: PERITONEAL DIALYSIS
     Route: 033
     Dates: end: 20110416

REACTIONS (7)
  - PERITONEAL DIALYSIS COMPLICATION [None]
  - HYPOXIA [None]
  - RESPIRATORY ARREST [None]
  - DIARRHOEA [None]
  - CHOKING [None]
  - RESPIRATORY FAILURE [None]
  - PERITONITIS [None]
